FAERS Safety Report 5511046-4 (Version None)
Quarter: 2007Q4

REPORT INFORMATION
  Report Type: 
  Country: None (occurrence: None)
  Receive Date: 20071029
  Receipt Date: 20071018
  Transmission Date: 20080405
  Serious: No
  Sender: FDA-Public Use
  Company Number: 200712333

PATIENT
  Age: 7 Month
  Sex: 0

DRUGS (1)
  1. SANDOGLOBULIN [Suspect]
     Indication: KAWASAKI'S DISEASE
     Dosage: 600 MG DAILY IV
     Route: 042
     Dates: start: 20071002, end: 20071002

REACTIONS (4)
  - BLOOD PRESSURE INCREASED [None]
  - CHILLS [None]
  - CYANOSIS [None]
  - PYREXIA [None]
